FAERS Safety Report 4473230-0 (Version None)
Quarter: 2004Q3

REPORT INFORMATION
  Report Type: 
  Country: None (occurrence: None)
  Receive Date: 20040917
  Receipt Date: 20040707
  Transmission Date: 20050211
  Serious: No
  Sender: FDA-Public Use
  Company Number: US-JNJFOC-20040703016

PATIENT
  Age: 43 Year
  Sex: Female
  Weight: 68.0396 kg

DRUGS (1)
  1. ORTHO EVRA [Suspect]
     Indication: HORMONE LEVEL ABNORMAL
     Dosage: 1 DOSE(S), 3 IN 4 WEEK, TRANSDERMAL
     Route: 062
     Dates: start: 20040507

REACTIONS (4)
  - ABDOMINAL DISTENSION [None]
  - HYPERTROPHY BREAST [None]
  - METRORRHAGIA [None]
  - WEIGHT INCREASED [None]
